FAERS Safety Report 6409605-X (Version None)
Quarter: 2009Q4

REPORT INFORMATION
  Report Type: 
  Country: None (occurrence: None)
  Receive Date: 20091022
  Receipt Date: 20091013
  Transmission Date: 20100525
  Serious: No
  Sender: FDA-Public Use
  Company Number: US-B.I. PHARMACEUTICALS,INC./RIDGEFIELD-2009-BP-10504BP

PATIENT
  Age: 82 Year
  Sex: Male

DRUGS (5)
  1. FLOMAX [Suspect]
     Indication: BENIGN PROSTATIC HYPERPLASIA
     Dosage: 0.4 MG
     Route: 048
     Dates: start: 20090801, end: 20090801
  2. FLOMAX [Suspect]
     Indication: URINE FLOW DECREASED
  3. DIAZEPAM [Concomitant]
     Indication: SLEEP DISORDER
  4. ASPIRIN [Concomitant]
     Indication: PROPHYLAXIS
  5. FISH OIL [Concomitant]

REACTIONS (8)
  - BALANCE DISORDER [None]
  - DIARRHOEA [None]
  - DIZZINESS [None]
  - HYPERSENSITIVITY [None]
  - NAUSEA [None]
  - PRURITUS [None]
  - SKIN DISORDER [None]
  - URTICARIA [None]
